FAERS Safety Report 17265116 (Version 2)
Quarter: 2020Q2

REPORT INFORMATION
  Report Type: Report from Study
  Country: None (occurrence: US)
  Receive Date: 20200113
  Receipt Date: 20200513
  Transmission Date: 20200713
  Serious: Yes (Hospitalization, Other)
  Sender: FDA-Public Use
  Company Number: US-ABBVIE-20K-163-3228552-00

PATIENT
  Sex: Female

DRUGS (1)
  1. HUMIRA [Suspect]
     Active Substance: ADALIMUMAB
     Indication: RHEUMATOID ARTHRITIS
     Dosage: CITRATE FREE
     Route: 058

REACTIONS (12)
  - Sepsis [Unknown]
  - Monoplegia [Unknown]
  - Post procedural infection [Not Recovered/Not Resolved]
  - Dysphonia [Unknown]
  - Fall [Not Recovered/Not Resolved]
  - Hair texture abnormal [Not Recovered/Not Resolved]
  - Intervertebral disc degeneration [Unknown]
  - Spinal operation [Recovered/Resolved]
  - Impaired healing [Unknown]
  - Foot deformity [Not Recovered/Not Resolved]
  - Post procedural diarrhoea [Recovering/Resolving]
  - Spinal cord infection [Unknown]

NARRATIVE: CASE EVENT DATE: 2019
